FAERS Safety Report 10953873 (Version 2)
Quarter: 2015Q2

REPORT INFORMATION
  Report Type: Spontaneous
  Country: CH (occurrence: CH)
  Receive Date: 20150325
  Receipt Date: 20150407
  Transmission Date: 20150821
  Serious: Yes (Other)
  Sender: FDA-Public Use
  Company Number: CH-TEVA-549212ISR

PATIENT
  Age: 42 Year
  Sex: Female
  Weight: 59 kg

DRUGS (4)
  1. LAMICTAL [Suspect]
     Active Substance: LAMOTRIGINE
     Dosage: 350 MILLIGRAM DAILY; 150MG-0-200MG
     Route: 048
     Dates: end: 201502
  2. TECFIDERA [Suspect]
     Active Substance: DIMETHYL FUMARATE
     Indication: RELAPSING-REMITTING MULTIPLE SCLEROSIS
     Dosage: 480 MILLIGRAM DAILY; CONTINUING
     Route: 048
     Dates: start: 20150126
  3. ESCITALOPRAM [Suspect]
     Active Substance: ESCITALOPRAM OXALATE
     Indication: DEPRESSION
     Dosage: CONTINUING, 1 TABLET EVERY 2 DAYS
     Route: 048
  4. LAMICTAL [Suspect]
     Active Substance: LAMOTRIGINE
     Indication: EPILEPSY
     Route: 048
     Dates: start: 20150225

REACTIONS (2)
  - Hypothyroidism [Not Recovered/Not Resolved]
  - Serum ferritin decreased [Not Recovered/Not Resolved]

NARRATIVE: CASE EVENT DATE: 20150227
